FAERS Safety Report 18560814 (Version 3)
Quarter: 2020Q4

REPORT INFORMATION
  Report Type: Report from Study
  Country: FR (occurrence: FR)
  Receive Date: 20201130
  Receipt Date: 20201222
  Transmission Date: 20210114
  Serious: Yes (Other)
  Sender: FDA-Public Use
  Company Number: FR-GILEAD-2020-0505451

PATIENT
  Age: 74 Year
  Sex: Male
  Weight: 81 kg

DRUGS (20)
  1. DAPTOMYCIN. [Suspect]
     Active Substance: DAPTOMYCIN
     Indication: STAPHYLOCOCCAL BACTERAEMIA
     Dosage: 850 MG, QD
     Route: 042
     Dates: start: 20201011, end: 20201016
  2. CIRCADIN [Concomitant]
     Active Substance: MELATONIN
     Route: 048
  3. OXYGEN. [Concomitant]
     Active Substance: OXYGEN
     Dosage: 2L/MIN
     Dates: start: 20201012
  4. REMDESIVIR. [Suspect]
     Active Substance: REMDESIVIR
     Indication: COVID-19
     Dosage: 100 MG, QD
     Route: 048
     Dates: start: 20201011, end: 20201016
  5. TRAMADOL. [Concomitant]
     Active Substance: TRAMADOL
     Route: 048
  6. PARACETAMOL [Concomitant]
     Active Substance: ACETAMINOPHEN
  7. DAPTOMYCIN. [Suspect]
     Active Substance: DAPTOMYCIN
     Indication: COVID-19
  8. OXYGEN. [Concomitant]
     Active Substance: OXYGEN
     Dosage: 1L/MIN
  9. COUMADIN [Concomitant]
     Active Substance: WARFARIN SODIUM
     Dosage: UNK
     Dates: start: 202005
  10. LOVENOX [Concomitant]
     Active Substance: ENOXAPARIN SODIUM
     Dosage: UNK
     Dates: start: 20201011, end: 20201025
  11. LAMICTAL [Concomitant]
     Active Substance: LAMOTRIGINE
     Indication: EPILEPSY
     Dosage: UNK
     Route: 048
     Dates: start: 201910
  12. MIANSERINE [MIANSERIN] [Concomitant]
     Active Substance: MIANSERIN HYDROCHLORIDE
     Route: 048
  13. OXYGEN. [Concomitant]
     Active Substance: OXYGEN
     Dosage: 1L/MIN
  14. AMOXICILLIN. [Concomitant]
     Active Substance: AMOXICILLIN
     Dosage: UNK
     Dates: start: 20201007
  15. TAZOCILLINE [Concomitant]
     Active Substance: PIPERACILLIN SODIUM\TAZOBACTAM SODIUM
     Dosage: UNK
     Dates: start: 20201008, end: 20201008
  16. CIRCADIN [Concomitant]
     Active Substance: MELATONIN
     Route: 048
  17. TRAMADOL. [Concomitant]
     Active Substance: TRAMADOL
     Route: 048
  18. OXYGEN. [Concomitant]
     Active Substance: OXYGEN
     Dosage: UNK
     Dates: start: 20201009
  19. DEXAMETHASONE. [Concomitant]
     Active Substance: DEXAMETHASONE
  20. MIANSERINE [MIANSERIN] [Concomitant]
     Active Substance: MIANSERIN HYDROCHLORIDE
     Route: 048

REACTIONS (1)
  - Erythema [Recovered/Resolved]

NARRATIVE: CASE EVENT DATE: 20201016
